FAERS Safety Report 22634276 (Version 1)
Quarter: 2023Q2

REPORT INFORMATION
  Report Type: Spontaneous
  Country: GB (occurrence: GB)
  Receive Date: 20230623
  Receipt Date: 20230623
  Transmission Date: 20230721
  Serious: Yes (Other)
  Sender: FDA-Public Use
  Company Number: GB-MHRA-MED-202306171728357760-NLHVR

PATIENT
  Age: 35 Year
  Sex: Female

DRUGS (1)
  1. OXYBUTYNIN [Suspect]
     Active Substance: OXYBUTYNIN
     Indication: Biliary cyst
     Dosage: 5 MILLIGRAM
     Route: 065
     Dates: start: 20230501, end: 20230613

REACTIONS (1)
  - Sleep deficit [Not Recovered/Not Resolved]
